FAERS Safety Report 6140327-9 (Version None)
Quarter: 2009Q2

REPORT INFORMATION
  Report Type: 
  Country: None (occurrence: None)
  Receive Date: 20090401
  Receipt Date: 20090319
  Transmission Date: 20091009
  Serious: Yes (Hospitalization)
  Sender: FDA-Public Use
  Company Number: US-ELI_LILLY_AND_COMPANY-US200803003465

PATIENT
  Sex: Male
  Weight: 92.971 kg

DRUGS (1)
  1. ZYPREXA [Suspect]
     Dosage: 5 MG, DAILY (1/D)
     Dates: start: 19971201

REACTIONS (3)
  - CORONARY ARTERY DISEASE [None]
  - DIABETES MELLITUS [None]
  - HYPOGLYCAEMIA [None]
